FAERS Safety Report 4572246-3 (Version None)
Quarter: 2005Q1

REPORT INFORMATION
  Report Type: 
  Country: None (occurrence: None)
  Receive Date: 20050203
  Receipt Date: 20050125
  Transmission Date: 20050727
  Serious: Yes (Hospitalization)
  Sender: FDA-Public Use
  Company Number: 2005-124622-NL

PATIENT
  Age: 34 Year
  Sex: Female

DRUGS (6)
  1. ROCURONIUM BROMIDE [Suspect]
     Indication: ANAESTHESIA
     Dates: start: 20050108, end: 20050108
  2. SUXAMETONIUM CHLORIDE [Suspect]
     Indication: ANAESTHESIA
     Dates: start: 20050108, end: 20050108
  3. PREDNISOLONE [Concomitant]
  4. METHOTREXATE [Concomitant]
  5. THIOPENTONE [Concomitant]
  6. FENTANTYL [Concomitant]

REACTIONS (5)
  - CHILLS [None]
  - FACE OEDEMA [None]
  - MUSCLE CONTRACTIONS INVOLUNTARY [None]
  - TACHYCARDIA [None]
  - URTICARIA [None]
